FAERS Safety Report 8448309-9 (Version None)
Quarter: 2012Q2

REPORT INFORMATION
  Report Type: 
  Country: None (occurrence: None)
  Receive Date: 20120619
  Receipt Date: 20120611
  Transmission Date: 20120825
  Serious: Yes (Other)
  Sender: FDA-Public Use
  Company Number: US-ASTRAZENECA-2011SE29007

PATIENT
  Age: 57 Year
  Sex: Female
  Weight: 43.1 kg

DRUGS (7)
  1. SYMBICORT [Suspect]
     Indication: CHRONIC OBSTRUCTIVE PULMONARY DISEASE
     Dosage: 320 MCG BID
     Route: 055
     Dates: start: 20060101
  2. SYMBICORT [Suspect]
     Dosage: 160/4.5 BID
     Route: 055
     Dates: start: 20110301
  3. CADUET [Concomitant]
  4. SYMBICORT [Suspect]
     Dosage: 160/4.5 BID
     Route: 055
     Dates: start: 20110301
  5. ALBUTEROL [Concomitant]
  6. SPIRIVA [Concomitant]
  7. SYMBICORT [Suspect]
     Indication: BRONCHITIS
     Dosage: 320 MCG BID
     Route: 055
     Dates: start: 20060101

REACTIONS (3)
  - ARTHRITIS [None]
  - THERAPEUTIC RESPONSE UNEXPECTED [None]
  - OFF LABEL USE [None]
